FAERS Safety Report 12920810 (Version 1)
Quarter: 2016Q4

REPORT INFORMATION
  Report Type: Spontaneous
  Country: US (occurrence: US)
  Receive Date: 20161105
  Receipt Date: 20161105
  Transmission Date: 20170207
  Serious: No
  Sender: FDA-Public Use
  Company Number: None

PATIENT
  Age: 92 Year
  Sex: Female

DRUGS (3)
  1. ENBREL [Suspect]
     Active Substance: ETANERCEPT
     Indication: GLAUCOMA
     Dosage: ENBREL 50 SQ
     Route: 058
  2. ENBREL [Suspect]
     Active Substance: ETANERCEPT
     Indication: GASTROOESOPHAGEAL REFLUX DISEASE
     Dosage: ENBREL 50 SQ
     Route: 058
  3. ENBREL [Suspect]
     Active Substance: ETANERCEPT
     Indication: OESOPHAGITIS
     Dosage: ENBREL 50 SQ
     Route: 058

REACTIONS (1)
  - Death [None]

NARRATIVE: CASE EVENT DATE: 20161105
